FAERS Safety Report 6375466-0 (Version None)
Quarter: 2009Q3

REPORT INFORMATION
  Report Type: 
  Country: None (occurrence: None)
  Receive Date: 20090924
  Receipt Date: 20090914
  Transmission Date: 20100115
  Serious: Yes (Death, Other)
  Sender: FDA-Public Use
  Company Number: GB-PFIZER INC-2009268626

PATIENT
  Age: 53 Year

DRUGS (6)
  1. CYCLOPHOSPHAMIDE [Suspect]
     Indication: DIFFUSE LARGE B-CELL LYMPHOMA STAGE IV
  2. DOXORUBICIN HCL [Suspect]
  3. METHOTREXATE [Suspect]
     Indication: DIFFUSE LARGE B-CELL LYMPHOMA STAGE IV
     Route: 037
  4. PREDNISOLONE AND PREDNISOLONE STEAGLATE [Suspect]
  5. ONCOVIN [Suspect]
  6. RITUXIMAB [Suspect]
     Indication: DIFFUSE LARGE B-CELL LYMPHOMA STAGE IV

REACTIONS (5)
  - DEATH [None]
  - ENCEPHALITIS ENTEROVIRAL [None]
  - HYPOGAMMAGLOBULINAEMIA [None]
  - NEUTROPENIA [None]
  - WEIGHT DECREASED [None]
